FAERS Safety Report 5366794-6 (Version None)
Quarter: 2007Q2

REPORT INFORMATION
  Report Type: 
  Country: None (occurrence: None)
  Receive Date: 20070622
  Receipt Date: 20060502
  Transmission Date: 20071010
  Serious: No
  Sender: FDA-Public Use
  Company Number: A0604075A

PATIENT
  Age: 40 Year
  Sex: Female

DRUGS (3)
  1. ZYBAN [Suspect]
     Dosage: 150MG TWICE PER DAY
     Route: 048
     Dates: start: 20060101
  2. ADVAIR DISKUS 100/50 [Concomitant]
  3. YASMIN [Concomitant]

REACTIONS (2)
  - ARTHRALGIA [None]
  - INSOMNIA [None]
